FAERS Safety Report 5336481-9 (Version None)
Quarter: 2007Q2

REPORT INFORMATION
  Report Type: 
  Country: None (occurrence: None)
  Receive Date: 20070524
  Receipt Date: 20070511
  Transmission Date: 20071010
  Serious: Yes (Hospitalization)
  Sender: FDA-Public Use
  Company Number: FABR-11957

PATIENT
  Age: 49 Year
  Sex: Male
  Weight: 71.7 kg

DRUGS (5)
  1. FABRAZYME [Suspect]
     Indication: FABRY'S DISEASE
     Dosage: 70 MG/KG Q2WKS IV
     Route: 042
  2. ATARAX [Concomitant]
  3. PARACETAMOL [Concomitant]
  4. CORTANCYL [Concomitant]
  5. AUGMENTIN '125' [Concomitant]

REACTIONS (6)
  - BRONCHITIS [None]
  - CYANOSIS [None]
  - HYPOXIA [None]
  - PHARYNGITIS [None]
  - PNEUMONIA [None]
  - TOOTH DISCOLOURATION [None]
